FAERS Safety Report 24721738 (Version 1)
Quarter: 2024Q4

REPORT INFORMATION
  Report Type: Spontaneous
  Country: US (occurrence: None)
  Receive Date: 20241210
  Receipt Date: 20241210
  Transmission Date: 20250115
  Serious: Yes (Hospitalization)
  Sender: Public
  Company Number: None

PATIENT
  Age: 77 Year
  Sex: Male
  Weight: 97 kg

DRUGS (1)
  1. FLECAINIDE ACETATE [Suspect]
     Active Substance: FLECAINIDE ACETATE
     Indication: Atrial flutter
     Dosage: FREQUENCY : TWICE A DAY;?
     Route: 048
     Dates: start: 20210521, end: 20210602

REACTIONS (2)
  - Tremor [None]
  - Laboratory test abnormal [None]

NARRATIVE: CASE EVENT DATE: 20210601
